FAERS Safety Report 11404718 (Version 1)
Quarter: 2015Q3

REPORT INFORMATION
  Report Type: Spontaneous
  Country: US (occurrence: US)
  Receive Date: 20150821
  Receipt Date: 20150821
  Transmission Date: 20151125
  Serious: No
  Sender: FDA-Public Use
  Company Number: US-ACTELION PHARMACEUTICALS US, INC.-A-US2014-108895

PATIENT
  Age: 44 Year
  Sex: Female

DRUGS (7)
  1. XARELTO [Concomitant]
     Active Substance: RIVAROXABAN
  2. NEURONTIN [Concomitant]
     Active Substance: GABAPENTIN
  3. VELETRI [Suspect]
     Active Substance: EPOPROSTENOL
     Dosage: 34.67 NG/KG, PER MIN
     Route: 042
     Dates: start: 20141118
  4. VELETRI [Suspect]
     Active Substance: EPOPROSTENOL
     Dosage: 7.76 NG/KG, PER MIN
     Route: 042
     Dates: start: 20141118
  5. SILDENAFIL. [Concomitant]
     Active Substance: SILDENAFIL
  6. ASPIRIN. [Concomitant]
     Active Substance: ASPIRIN
  7. VELETRI [Suspect]
     Active Substance: EPOPROSTENOL
     Indication: PULMONARY ARTERIAL HYPERTENSION
     Dosage: 40.29 NG/KG, PER MIN
     Route: 042
     Dates: start: 20141118

REACTIONS (7)
  - Musculoskeletal pain [Unknown]
  - Diarrhoea [Unknown]
  - Vomiting [Unknown]
  - Pain in extremity [Unknown]
  - Weight decreased [Unknown]
  - Nausea [Unknown]
  - Headache [Unknown]

NARRATIVE: CASE EVENT DATE: 20141121
